FAERS Safety Report 15809150 (Version 4)
Quarter: 2020Q2

REPORT INFORMATION
  Report Type: Report from Study
  Country: US (occurrence: US)
  Receive Date: 20190110
  Receipt Date: 20200529
  Transmission Date: 20200713
  Serious: Yes (Hospitalization)
  Sender: FDA-Public Use
  Company Number: US-ACTELION-A-NJ2018-177549

PATIENT
  Sex: Female

DRUGS (22)
  1. COLICINE [Concomitant]
  2. SPIRIVA COMBI [Concomitant]
     Active Substance: TIOTROPIUM BROMIDE
  3. MONTELUKAST [Concomitant]
     Active Substance: MONTELUKAST SODIUM
  4. BREO ELLIPTA [Concomitant]
     Active Substance: FLUTICASONE FUROATE\VILANTEROL TRIFENATATE
  5. TESSALON [Concomitant]
     Active Substance: BENZONATATE
  6. BENZONATATE. [Concomitant]
     Active Substance: BENZONATATE
  7. LASIX [Concomitant]
     Active Substance: FUROSEMIDE
  8. PANTOPRAZOLE [Concomitant]
     Active Substance: PANTOPRAZOLE
  9. NORVASC [Concomitant]
     Active Substance: AMLODIPINE BESYLATE
  10. POTASSIUM [Concomitant]
     Active Substance: POTASSIUM
  11. SINGULAIR [Concomitant]
     Active Substance: MONTELUKAST SODIUM
  12. AZELASTINE. [Concomitant]
     Active Substance: AZELASTINE HYDROCHLORIDE
  13. TRACLEER [Suspect]
     Active Substance: BOSENTAN
     Indication: PULMONARY ARTERIAL HYPERTENSION
     Dosage: 125 MG, BID
     Route: 048
     Dates: start: 20180516
  14. REVATIO [Concomitant]
     Active Substance: SILDENAFIL CITRATE
  15. CYCLOBENZAPRINE. [Concomitant]
     Active Substance: CYCLOBENZAPRINE
  16. FLUOXETINE HYDROCHLORIDE. [Concomitant]
     Active Substance: FLUOXETINE HYDROCHLORIDE
  17. AMLODIPINE [Concomitant]
     Active Substance: AMLODIPINE BESYLATE
  18. ACETAMINOPHEN. [Concomitant]
     Active Substance: ACETAMINOPHEN
  19. ASPIRIN. [Concomitant]
     Active Substance: ASPIRIN
  20. VENTOLIN HFA [Concomitant]
     Active Substance: ALBUTEROL SULFATE
  21. PROVENTIL [Concomitant]
     Active Substance: ALBUTEROL
  22. VITAMIN D [Concomitant]
     Active Substance: VITAMIN D NOS

REACTIONS (4)
  - Vertigo [Unknown]
  - Oxygen saturation abnormal [Unknown]
  - Hypertension [Unknown]
  - Hospitalisation [Unknown]
